FAERS Safety Report 7712477-4 (Version None)
Quarter: 2011Q3

REPORT INFORMATION
  Report Type: 
  Country: None (occurrence: None)
  Receive Date: 20110826
  Receipt Date: 20110826
  Transmission Date: 20111222
  Serious: Yes (Other)
  Sender: FDA-Public Use
  Company Number: None

PATIENT
  Age: 41 Year
  Sex: Female
  Weight: 72.574 kg

DRUGS (1)
  1. NUCYNTA [Suspect]
     Indication: PELVIC PAIN
     Dates: start: 20110808, end: 20110906

REACTIONS (8)
  - DYSPNOEA [None]
  - POLLAKIURIA [None]
  - AMNESIA [None]
  - HEART RATE INCREASED [None]
  - SINUS HEADACHE [None]
  - AGITATION [None]
  - GAIT DISTURBANCE [None]
  - MENTAL STATUS CHANGES [None]
